FAERS Safety Report 5725073-5 (Version None)
Quarter: 2008Q2

REPORT INFORMATION
  Report Type: 
  Country: None (occurrence: None)
  Receive Date: 20080429
  Receipt Date: 20080414
  Transmission Date: 20081010
  Serious: Yes (Other)
  Sender: FDA-Public Use
  Company Number: PHBS2008IT04128

PATIENT
  Age: 76 Year
  Sex: Male

DRUGS (2)
  1. VISUDYNE [Suspect]
     Indication: NEOVASCULARISATION
  2. VISUDYNE [Suspect]
     Indication: RETINAL VEIN OCCLUSION

REACTIONS (1)
  - HYPHAEMA [None]
